FAERS Safety Report 7438490-2 (Version None)
Quarter: 2011Q2

REPORT INFORMATION
  Report Type: 
  Country: None (occurrence: None)
  Receive Date: 20110426
  Receipt Date: 20110421
  Transmission Date: 20111010
  Serious: Yes (Hospitalization, Other)
  Sender: FDA-Public Use
  Company Number: JP-PFIZER INC-2011079599

PATIENT
  Age: 87 Year
  Sex: Female
  Weight: 45.6 kg

DRUGS (8)
  1. HALCION [Suspect]
     Indication: INSOMNIA
     Dosage: 0.25 MG, 1X/DAY
     Route: 048
     Dates: start: 20070515
  2. CELECOX [Concomitant]
     Indication: PAIN
     Dosage: 100 MG, 2X/DAY
     Route: 048
     Dates: start: 20080422
  3. TANATRIL ^TANABE^ [Concomitant]
     Indication: HYPERTENSION
     Dosage: 5 MG, 1X/DAY
     Route: 048
     Dates: start: 20090915
  4. LYRICA [Suspect]
     Indication: POST HERPETIC NEURALGIA
     Dosage: 75 MG, 2X/DAY
     Route: 048
     Dates: start: 20100622, end: 20110409
  5. MERCAZOLE [Concomitant]
     Indication: HYPERTHYROIDISM
     Dosage: 5 MG, 1X/DAY
     Route: 048
     Dates: start: 20090707
  6. ACTONEL [Concomitant]
     Indication: OSTEOPOROSIS
     Dosage: 17.5 MG, WEEKLY
     Route: 048
     Dates: start: 20100126
  7. LIPITOR [Concomitant]
     Indication: HYPERCHOLESTEROLAEMIA
     Dosage: 10 MG, 1X/DAY
     Route: 048
     Dates: start: 20040803
  8. SELBEX [Concomitant]
     Dosage: 50 MG, 2X/DAY
     Route: 048
     Dates: start: 20080422

REACTIONS (2)
  - LOSS OF CONSCIOUSNESS [None]
  - MUSCULAR WEAKNESS [None]
